FAERS Safety Report 10507404 (Version 1)
Quarter: 2014Q4

REPORT INFORMATION
  Report Type: Other
  Country: DE (occurrence: DE)
  Receive Date: 20141009
  Receipt Date: 20141009
  Transmission Date: 20150528
  Serious: Yes (Other)
  Sender: FDA-Public Use
  Company Number: DE-MYLANLABS-2014M1002299

PATIENT

DRUGS (5)
  1. LOSARTAN POTASSIUM,HYDROCHLOROTHIAZIDE [Suspect]
     Active Substance: HYDROCHLOROTHIAZIDE\LOSARTAN POTASSIUM
     Indication: HYPERTENSION
     Dosage: DAILY 150/12,5
     Route: 048
     Dates: start: 20120117, end: 20120123
  2. LEVOMETHADONE [Concomitant]
     Active Substance: LEVOMETHADONE
     Indication: DRUG DEPENDENCE
     Route: 048
     Dates: start: 20060831, end: 20130704
  3. L-THYROXIN 50 [Concomitant]
     Active Substance: LEVOTHYROXINE SODIUM
     Indication: HYPOTHYROIDISM
     Route: 048
     Dates: start: 20110411
  4. VALPROAT [Concomitant]
     Active Substance: VALPROATE SODIUM
     Indication: EPILEPSY
     Route: 048
     Dates: start: 20080527
  5. NORTRILEN [Concomitant]
     Active Substance: NORTRIPTYLINE
     Indication: DEPRESSION
     Route: 048
     Dates: start: 20110818

REACTIONS (3)
  - Gait disturbance [Recovered/Resolved]
  - Dermatitis allergic [Recovered/Resolved]
  - Dizziness [Recovered/Resolved]
